FAERS Safety Report 9210332 (Version 3)
Quarter: 2013Q3

REPORT INFORMATION
  Report Type: Spontaneous
  Country: JP (occurrence: JP)
  Receive Date: 20130404
  Receipt Date: 20130715
  Transmission Date: 20140515
  Serious: Yes (Hospitalization, Other)
  Sender: FDA-Public Use
  Company Number: JP-JNJFOC-20130316122

PATIENT
  Age: 29 Year
  Sex: Female

DRUGS (5)
  1. RISPERDAL [Suspect]
     Indication: DEPRESSIVE SYMPTOM
     Route: 048
     Dates: start: 20130305, end: 20130318
  2. TEGRETOL [Suspect]
     Indication: EPILEPSY
     Route: 048
     Dates: start: 20130305, end: 20130318
  3. DOGMATYL [Suspect]
     Indication: DEPRESSIVE SYMPTOM
     Route: 048
     Dates: start: 20130305, end: 20130318
  4. LAMICTAL [Suspect]
     Indication: EPILEPSY
     Route: 048
     Dates: start: 20130305, end: 20130318
  5. KEPPRA [Suspect]
     Indication: EPILEPSY
     Route: 048
     Dates: start: 20130305, end: 20130318

REACTIONS (3)
  - Renal failure acute [Recovered/Resolved]
  - Subarachnoid haemorrhage [Recovered/Resolved]
  - Off label use [Unknown]
